FAERS Safety Report 10418245 (Version 1)
Quarter: 2014Q3

REPORT INFORMATION
  Report Type: Spontaneous
  Country: US (occurrence: None)
  Receive Date: 20140827
  Receipt Date: 20140827
  Transmission Date: 20150326
  Serious: Yes (Hospitalization)
  Sender: FDA-Public Use
  Company Number: 2499821

PATIENT
  Age: 76 Year
  Sex: Male
  Weight: 121 kg

DRUGS (3)
  1. ZOMETA [Concomitant]
     Active Substance: ZOLEDRONIC ACID
  2. VINCRISTINE SULFATE INJECTION, USP, 1MG/ML (VINCRISTINE SULFATE) [Suspect]
     Active Substance: VINCRISTINE SULFATE
     Indication: PLASMA CELL MYELOMA
     Dosage: 0.4 MG, 3 DAY Q28 DAYS, VIA PUMP
     Dates: start: 20120702, end: 20121119
  3. ADRIAMYCIN [Suspect]
     Active Substance: DOXORUBICIN HYDROCHLORIDE
     Indication: PLASMA CELL MYELOMA
     Dates: start: 20120702, end: 20120808

REACTIONS (2)
  - Hypercalcaemia [None]
  - Asthenia [None]

NARRATIVE: CASE EVENT DATE: 20120720
